FAERS Safety Report 4893796-6 (Version None)
Quarter: 2006Q1

REPORT INFORMATION
  Report Type: 
  Country: None (occurrence: None)
  Receive Date: 20060127
  Receipt Date: 20051114
  Transmission Date: 20060701
  Serious: Yes (Death, Life-Threatening, Other)
  Sender: FDA-Public Use
  Company Number: 2005AP05968

PATIENT
  Age: 27245 Day
  Sex: Male

DRUGS (13)
  1. IRESSA [Suspect]
     Indication: NON-SMALL CELL LUNG CANCER
     Route: 048
     Dates: start: 20050827, end: 20050928
  2. PREDONINE [Concomitant]
     Indication: INTERSTITIAL LUNG DISEASE
     Route: 048
     Dates: start: 20051003
  3. SEROQUEL [Concomitant]
     Indication: RESTLESSNESS
     Route: 048
     Dates: start: 20051004, end: 20051025
  4. SEROQUEL [Concomitant]
     Indication: PSYCHOTIC DISORDER
     Route: 048
     Dates: start: 20051004, end: 20051025
  5. VEGETAMIN-B [Concomitant]
     Indication: INSOMNIA
     Route: 048
     Dates: start: 20051004, end: 20051104
  6. KENTAN [Concomitant]
     Indication: CANCER PAIN
     Route: 048
  7. KENTAN [Concomitant]
     Indication: SPINAL OSTEOARTHRITIS
     Route: 048
  8. LENDEM [Concomitant]
     Indication: INSOMNIA
     Route: 048
  9. URINORM [Concomitant]
     Indication: HYPERURICAEMIA
     Route: 048
  10. NORVASC [Concomitant]
     Indication: HYPERTENSION
  11. JUVELA NICOTINATE [Concomitant]
     Indication: NEUROPATHY PERIPHERAL
     Route: 048
  12. NITRODERM [Concomitant]
     Indication: ANGINA PECTORIS
     Route: 062
  13. GASPORT [Concomitant]
     Indication: GASTRIC ULCER
     Route: 048

REACTIONS (3)
  - DISEASE PROGRESSION [None]
  - INTERSTITIAL LUNG DISEASE [None]
  - PNEUMONIA BACTERIAL [None]
